FAERS Safety Report 18510354 (Version 1)
Quarter: 2020Q4

REPORT INFORMATION
  Report Type: Spontaneous
  Country: US (occurrence: US)
  Receive Date: 20201116
  Receipt Date: 20201116
  Transmission Date: 20210114
  Serious: No
  Sender: FDA-Public Use
  Company Number: None

PATIENT
  Sex: Female

DRUGS (1)
  1. TECFIDERA [Suspect]
     Active Substance: DIMETHYL FUMARATE
     Indication: MULTIPLE SCLEROSIS
     Route: 048
     Dates: start: 202010

REACTIONS (9)
  - Derealisation [None]
  - Ocular icterus [None]
  - Abnormal behaviour [None]
  - Confusional state [None]
  - Coordination abnormal [None]
  - Speech disorder [None]
  - Memory impairment [None]
  - Yellow skin [None]
  - Chromaturia [None]
